FAERS Safety Report 9517325 (Version 2)
Quarter: 2013Q4

REPORT INFORMATION
  Report Type: Spontaneous
  Country: DK (occurrence: GB)
  Receive Date: 20130911
  Receipt Date: 20131204
  Transmission Date: 20140711
  Serious: Yes (Disabling, Other)
  Sender: FDA-Public Use
  Company Number: GB-FRI-1000048688

PATIENT
  Age: 38 Year
  Sex: Female

DRUGS (3)
  1. CITALOPRAM [Suspect]
     Indication: DEPRESSION
     Dosage: 30 MG
     Route: 048
     Dates: start: 2010
  2. CITALOPRAM [Suspect]
     Dosage: 20 MG
     Route: 048
  3. CITALOPRAM [Suspect]
     Dosage: 30 MG
     Route: 048

REACTIONS (3)
  - Hypersexuality [Recovered/Resolved]
  - Orgasm abnormal [Recovered/Resolved]
  - Pain [Recovered/Resolved]
